FAERS Safety Report 6026996-2 (Version None)
Quarter: 2009Q1

REPORT INFORMATION
  Report Type: 
  Country: None (occurrence: None)
  Receive Date: 20090105
  Receipt Date: 20081222
  Transmission Date: 20090719
  Serious: Yes (Disabling, Other)
  Sender: FDA-Public Use
  Company Number: GB-PFIZER INC-2008159167

PATIENT

DRUGS (3)
  1. CHAMPIX [Suspect]
     Indication: SMOKING CESSATION THERAPY
     Dosage: 1 MG, UNK
     Route: 048
     Dates: start: 20081025, end: 20081118
  2. DICLOFENAC SODIUM [Concomitant]
     Indication: PERIARTHRITIS
     Dosage: 75 MG, 2X/DAY
     Route: 048
     Dates: start: 20081016
  3. SPORANOX [Concomitant]
     Indication: PERIARTHRITIS
     Dosage: 100 MG, 3X/DAY
     Route: 048
     Dates: start: 20081016

REACTIONS (1)
  - MOOD ALTERED [None]
